FAERS Safety Report 11007489 (Version 2)
Quarter: 2015Q2

REPORT INFORMATION
  Report Type: Spontaneous
  Country: US (occurrence: US)
  Receive Date: 20150409
  Receipt Date: 20150525
  Transmission Date: 20150821
  Serious: No
  Sender: FDA-Public Use
  Company Number: US-JNJFOC-20140511960

PATIENT
  Age: 66 Year
  Sex: Female

DRUGS (4)
  1. REMICADE [Suspect]
     Active Substance: INFLIXIMAB
     Indication: CROHN^S DISEASE
     Dosage: 8 WEEKS PRIOR TO THE DATE OF THIS REPORT
     Route: 042
     Dates: start: 201403
  2. REMICADE [Suspect]
     Active Substance: INFLIXIMAB
     Indication: CROHN^S DISEASE
     Route: 042
     Dates: start: 20131121
  3. ACYCLOVIR. [Concomitant]
     Active Substance: ACYCLOVIR
     Route: 065
  4. ASACOL [Concomitant]
     Active Substance: MESALAMINE
     Route: 065

REACTIONS (2)
  - Fatigue [Unknown]
  - Dyspnoea [Unknown]

NARRATIVE: CASE EVENT DATE: 20140519
